FAERS Safety Report 7251681-9 (Version None)
Quarter: 2011Q1

REPORT INFORMATION
  Report Type: 
  Country: None (occurrence: None)
  Receive Date: 20110128
  Receipt Date: 20110118
  Transmission Date: 20110831
  Serious: Yes (Hospitalization)
  Sender: FDA-Public Use
  Company Number: FR-BAYER-2011-006151

PATIENT
  Age: 41 Year
  Sex: Female

DRUGS (1)
  1. IZILOX [Suspect]
     Indication: PRODUCT USED FOR UNKNOWN INDICATION
     Dosage: 1 DF, QD
     Dates: start: 20110101

REACTIONS (8)
  - DERMATITIS BULLOUS [None]
  - PRURITUS GENITAL [None]
  - ELECTROCARDIOGRAM QRS COMPLEX ABNORMAL [None]
  - SWELLING FACE [None]
  - TACHYCARDIA [None]
  - PRURITUS [None]
  - GENERALISED ERYTHEMA [None]
  - ANAPHYLACTIC SHOCK [None]
